FAERS Safety Report 7573828-7 (Version None)
Quarter: 2011Q2

REPORT INFORMATION
  Report Type: 
  Country: None (occurrence: None)
  Receive Date: 20110627
  Receipt Date: 20110607
  Transmission Date: 20111010
  Serious: Yes (Hospitalization)
  Sender: FDA-Public Use
  Company Number: A0870503A

PATIENT
  Age: 57 Year
  Sex: Female
  Weight: 95 kg

DRUGS (26)
  1. ADVAIR DISKUS 100/50 [Concomitant]
  2. PROVENTIL [Concomitant]
  3. ATROVENT [Concomitant]
  4. AVANDAMET [Suspect]
     Route: 048
     Dates: start: 20040118, end: 20071001
  5. FUROSEMIDE [Concomitant]
  6. ZYRTEC [Concomitant]
  7. AMARYL [Concomitant]
  8. METOPROLOL TARTRATE [Concomitant]
  9. PROZAC [Concomitant]
  10. LISINOPRIL [Concomitant]
  11. METOCLOPRAMIDE [Concomitant]
  12. LIPITOR [Concomitant]
  13. NITROGLYCERIN [Concomitant]
  14. PROTONIX [Concomitant]
  15. CELEBREX [Concomitant]
  16. METFORMIN HCL [Concomitant]
  17. AVANDIA [Suspect]
     Indication: DIABETES MELLITUS
     Route: 048
     Dates: start: 20030901
  18. HYDRALAZINE HCL [Concomitant]
  19. MAGNESIUM OXIDE [Concomitant]
  20. DOXAZOSIN MESYLATE [Concomitant]
  21. REGLAN [Concomitant]
  22. ZETIA [Concomitant]
  23. ASPIRIN [Concomitant]
  24. POTASSIUM [Concomitant]
  25. CLARITIN [Concomitant]
  26. TEMAZEPAM [Concomitant]

REACTIONS (2)
  - CARDIAC FAILURE CONGESTIVE [None]
  - TRANSIENT ISCHAEMIC ATTACK [None]
